FAERS Safety Report 5740230-X (Version None)
Quarter: 2008Q2

REPORT INFORMATION
  Report Type: 
  Country: None (occurrence: None)
  Receive Date: 20080513
  Receipt Date: 20080508
  Transmission Date: 20081010
  Serious: Yes (Death, Hospitalization)
  Sender: FDA-Public Use
  Company Number: 2007SP020161

PATIENT
  Age: 30 Year
  Sex: Male
  Weight: 69 kg

DRUGS (34)
  1. TEMODAL [Suspect]
     Indication: GLIOBLASTOMA MULTIFORME
     Dosage: 150 MG/M2; QD; PO; 200 MG/M2; QD; PO
     Route: 048
     Dates: start: 20060923, end: 20060927
  2. TEMODAL [Suspect]
     Indication: RECURRENT CANCER
     Dosage: 150 MG/M2; QD; PO; 200 MG/M2; QD; PO
     Route: 048
     Dates: start: 20060923, end: 20060927
  3. TEMODAL [Suspect]
     Indication: GLIOBLASTOMA MULTIFORME
     Dosage: 150 MG/M2; QD; PO; 200 MG/M2; QD; PO
     Route: 048
     Dates: start: 20061021, end: 20061025
  4. TEMODAL [Suspect]
     Indication: RECURRENT CANCER
     Dosage: 150 MG/M2; QD; PO; 200 MG/M2; QD; PO
     Route: 048
     Dates: start: 20061021, end: 20061025
  5. TEMODAL [Suspect]
     Indication: GLIOBLASTOMA MULTIFORME
     Dosage: 150 MG/M2; QD; PO; 200 MG/M2; QD; PO
     Route: 048
     Dates: start: 20061118, end: 20061122
  6. TEMODAL [Suspect]
     Indication: RECURRENT CANCER
     Dosage: 150 MG/M2; QD; PO; 200 MG/M2; QD; PO
     Route: 048
     Dates: start: 20061118, end: 20061122
  7. ZANTAC [Concomitant]
  8. RINDERON [Concomitant]
  9. MAGMITT [Concomitant]
  10. GLYSENNID [Concomitant]
  11. NAVOBAN [Concomitant]
  12. AMOBAN [Concomitant]
  13. HACHIAZULE [Concomitant]
  14. FRANDOL S [Concomitant]
  15. CATLEP [Concomitant]
  16. AZULENE [Concomitant]
  17. GENTACIN [Concomitant]
  18. VIDARABINE [Concomitant]
  19. ACUATIM [Concomitant]
  20. NEW LECICARBON [Concomitant]
  21. SOLDEM 3A [Concomitant]
  22. LACTEC [Concomitant]
  23. SEFMAZON [Concomitant]
  24. ISOTONIC SODIUM CHLORODE SOLUTION [Concomitant]
  25. GLYCEOL [Concomitant]
  26. FAMOTIDINE [Concomitant]
  27. NOVO HEPARIN [Concomitant]
  28. PREDOPA [Concomitant]
  29. MULTIVITAMIN ADDITIVE [Concomitant]
  30. AMINO ACIDS NOS W/CARBOHYD. NOS/ELECTROL. NOS [Concomitant]
  31. ELEMENMIC [Concomitant]
  32. LASIX [Concomitant]
  33. SODIUM CHLORIDE [Concomitant]
  34. CEFTAZIDIME [Concomitant]

REACTIONS (8)
  - ALTERED STATE OF CONSCIOUSNESS [None]
  - DYSPHAGIA [None]
  - GAIT DISTURBANCE [None]
  - GENERAL PHYSICAL HEALTH DETERIORATION [None]
  - MALIGNANT NEOPLASM PROGRESSION [None]
  - PLATELET COUNT DECREASED [None]
  - PNEUMONIA [None]
  - PULMONARY EMBOLISM [None]
